FAERS Safety Report 9681489 (Version 1)
Quarter: 2013Q4

REPORT INFORMATION
  Report Type: Spontaneous
  Country: IL (occurrence: None)
  Receive Date: 20131107
  Receipt Date: 20131107
  Transmission Date: 20140711
  Serious: Yes (Hospitalization)
  Sender: FDA-Public Use
  Company Number: 2013-1735

PATIENT
  Age: 56 Year
  Sex: Male

DRUGS (2)
  1. KYPROLIS [Suspect]
     Indication: PRODUCT USED FOR UNKNOWN INDICATION
     Dates: start: 201309
  2. THALIDOMID [Concomitant]

REACTIONS (3)
  - Bone pain [None]
  - Blood lactate dehydrogenase increased [None]
  - Bone marrow necrosis [None]
